FAERS Safety Report 11315191 (Version 1)
Quarter: 2015Q3

REPORT INFORMATION
  Report Type: Report from Study
  Country: GB (occurrence: GB)
  Receive Date: 20150727
  Receipt Date: 20150727
  Transmission Date: 20151125
  Serious: Yes (Other)
  Sender: FDA-Public Use
  Company Number: GB-GILEAD-2015-0148977

PATIENT
  Age: 55 Year
  Sex: Male
  Weight: 62 kg

DRUGS (1)
  1. EMTRICITABINE/TENOFOVIR DISOPROXIL FUMARATE [Suspect]
     Active Substance: EMTRICITABINE\TENOFOVIR DISOPROXIL
     Indication: HIV INFECTION
     Dosage: 245 UNK, UNK
     Route: 048
     Dates: start: 2011, end: 201501

REACTIONS (3)
  - Osteoporosis [Unknown]
  - Bone density decreased [Recovered/Resolved]
  - Pain [Not Recovered/Not Resolved]

NARRATIVE: CASE EVENT DATE: 201406
